FAERS Safety Report 8344974 (Version 3)
Quarter: 2013Q4

REPORT INFORMATION
  Report Type: Spontaneous
  Country: US (occurrence: US)
  Receive Date: 20120120
  Receipt Date: 20131223
  Transmission Date: 20140711
  Serious: Yes (Life-Threatening, Hospitalization, Other)
  Sender: FDA-Public Use
  Company Number: US-BAYER-2012-005384

PATIENT
  Age: 30 Year
  Sex: Female
  Weight: 63.95 kg

DRUGS (7)
  1. YAZ [Suspect]
     Indication: CONTRACEPTION
     Dosage: UNK
     Dates: start: 2003, end: 201011
  2. YASMIN [Suspect]
     Indication: CONTRACEPTION
     Dosage: UNK
     Route: 048
     Dates: start: 2003, end: 201011
  3. OCELLA [Suspect]
     Indication: CONTRACEPTION
     Dosage: UNK
     Dates: start: 2003, end: 201011
  4. ONE-A-DAY [Concomitant]
     Dosage: ONE PILL DAILY
     Dates: start: 2006, end: 2009
  5. ZANTAC [Concomitant]
     Dosage: DAILY
     Dates: start: 200705
  6. PRILOSEC [Concomitant]
     Dosage: EACH MORNING
     Dates: start: 20090210
  7. PROTONIX [Concomitant]
     Indication: GASTRITIS
     Dosage: UNK
     Dates: start: 200705

REACTIONS (11)
  - Organ failure [None]
  - Cholecystitis chronic [None]
  - Gallbladder non-functioning [None]
  - Post procedural complication [None]
  - Internal injury [None]
  - Pain [None]
  - Fatigue [None]
  - Asthenia [None]
  - Anxiety [None]
  - Anhedonia [None]
  - General physical health deterioration [None]
